FAERS Safety Report 18501076 (Version 1)
Quarter: 2020Q4

REPORT INFORMATION
  Report Type: Spontaneous
  Country: PT (occurrence: PT)
  Receive Date: 20201113
  Receipt Date: 20201113
  Transmission Date: 20210114
  Serious: Yes (Life-Threatening, Other)
  Sender: FDA-Public Use
  Company Number: PT-ACCORD-208126

PATIENT
  Age: 31 Year
  Sex: Female

DRUGS (8)
  1. METHOTREXATE. [Suspect]
     Active Substance: METHOTREXATE
     Indication: METABOLIC DISORDER
  2. METFORMIN [Concomitant]
     Active Substance: METFORMIN HYDROCHLORIDE
     Route: 065
  3. FENOFIBRATE. [Concomitant]
     Active Substance: FENOFIBRATE
     Route: 065
  4. CICLOSPORIN [Suspect]
     Active Substance: CYCLOSPORINE
     Indication: DERMATOMYOSITIS
  5. AZATHIOPRINE. [Suspect]
     Active Substance: AZATHIOPRINE
     Indication: DERMATOMYOSITIS
  6. PAMIDRONIC ACID [Suspect]
     Active Substance: PAMIDRONIC ACID
     Indication: METABOLIC DISORDER
  7. METHOTREXATE. [Suspect]
     Active Substance: METHOTREXATE
     Indication: CALCINOSIS
     Dosage: UPTO 20MG/WEEK
     Route: 058
  8. PAMIDRONIC ACID [Suspect]
     Active Substance: PAMIDRONIC ACID
     Indication: CALCINOSIS
     Dosage: QUARTERLY
     Route: 042

REACTIONS (4)
  - Off label use [Unknown]
  - Treatment failure [Unknown]
  - Renal colic [Unknown]
  - Hodgkin^s disease [Recovered/Resolved]
